FAERS Safety Report 9032011 (Version 4)
Quarter: 2013Q1

REPORT INFORMATION
  Report Type: Spontaneous
  Country: CA (occurrence: CA)
  Receive Date: 20130125
  Receipt Date: 20130212
  Transmission Date: 20140127
  Serious: Yes (Other)
  Sender: FDA-Public Use
  Company Number: CA-JNJFOC-20130112288

PATIENT
  Age: 15 Year
  Sex: Female
  Weight: 65 kg

DRUGS (2)
  1. REGULAR STRENGTH TYLENOL [Suspect]
     Indication: PAIN MANAGEMENT
     Route: 048
  2. EXTRA STRENGTH TYLENOL [Suspect]
     Indication: LABORATORY TEST
     Dosage: 500 MG/CAPLET, 100 MG/ML EVERY 15 MINUTES FOR ONE HOUR (SALINE SOLUTION)
     Route: 058
     Dates: start: 20130118, end: 20130118

REACTIONS (1)
  - Anaphylactic reaction [Recovered/Resolved]
